FAERS Safety Report 10426140 (Version 2)
Quarter: 2014Q4

REPORT INFORMATION
  Report Type: Spontaneous
  Country: DE (occurrence: DE)
  Receive Date: 20140903
  Receipt Date: 20141110
  Transmission Date: 20150528
  Serious: Yes (Death, Hospitalization)
  Sender: FDA-Public Use
  Company Number: DE-AMGEN-DEUSP2014066853

PATIENT
  Age: 67 Year
  Sex: Male
  Weight: 70 kg

DRUGS (4)
  1. OXALIPLATIN. [Concomitant]
     Active Substance: OXALIPLATIN
     Indication: COLORECTAL CANCER METASTATIC
     Dosage: RECEIVED 80 % DOSE, Q14D
     Route: 042
     Dates: start: 20140403, end: 20140613
  2. VECTIBIX [Suspect]
     Active Substance: PANITUMUMAB
     Indication: COLORECTAL CANCER METASTATIC
     Dosage: 6 MG/KG, Q14D (388 MG)
     Route: 042
     Dates: start: 20140403
  3. 5-FU                               /00098801/ [Concomitant]
     Active Substance: FLUOROURACIL
     Indication: COLORECTAL CANCER METASTATIC
     Dosage: RECEIVED 80 % DOSE, Q14D
     Route: 042
     Dates: start: 20140403, end: 20140613
  4. FOLINIC ACID [Concomitant]
     Active Substance: LEUCOVORIN
     Indication: COLORECTAL CANCER METASTATIC
     Dosage: RECEIVED 80 % DOSE, Q14D
     Route: 042
     Dates: start: 20140403, end: 20140613

REACTIONS (7)
  - Folliculitis [Unknown]
  - Pneumomediastinum [Fatal]
  - General physical health deterioration [Unknown]
  - Atypical pneumonia [Fatal]
  - Skin disorder [Unknown]
  - Sepsis [Fatal]
  - Pneumopericardium [Fatal]

NARRATIVE: CASE EVENT DATE: 2014
